FAERS Safety Report 7480387 (Version 42)
Quarter: 2014Q3

REPORT INFORMATION
  Report Type: Spontaneous
  Country: US (occurrence: US)
  Receive Date: 20100716
  Receipt Date: 20140820
  Transmission Date: 20150326
  Serious: Yes (Disabling, Other)
  Sender: FDA-Public Use
  Company Number: PHEH2010US03502

PATIENT
  Sex: Female
  Weight: 63.3 kg

DRUGS (24)
  1. SKELAXIN [Concomitant]
     Active Substance: METAXALONE
  2. CHEMOTHERAPEUTICS [Concomitant]
     Active Substance: UNSPECIFIED INGREDIENT
  3. LORAZEPAM. [Concomitant]
     Active Substance: LORAZEPAM
  4. PREMARIN [Concomitant]
     Active Substance: ESTROGENS, CONJUGATED
  5. PERCOCET [Concomitant]
     Active Substance: ACETAMINOPHEN\OXYCODONE HYDROCHLORIDE
     Dosage: 325 MG, UNK
  6. AZITHROMYCIN [Concomitant]
     Active Substance: AZITHROMYCIN ANHYDROUS
  7. ALTACE [Concomitant]
     Active Substance: RAMIPRIL
  8. ZELNORM                                 /USA/ [Concomitant]
  9. DURAGESIC [Concomitant]
     Active Substance: FENTANYL
     Dosage: 100 UG, UNK
  10. ASPIRIN. [Concomitant]
     Active Substance: ASPIRIN
  11. ZOMETA [Suspect]
     Active Substance: ZOLEDRONIC ACID
     Indication: NEOPLASM MALIGNANT
     Dosage: 4 MG
     Route: 042
     Dates: start: 20051208, end: 20060417
  12. PROTONIX [Concomitant]
     Active Substance: PANTOPRAZOLE SODIUM
  13. ZOMETA [Suspect]
     Active Substance: ZOLEDRONIC ACID
     Dosage: 4 MG, QMO
     Route: 042
     Dates: start: 200606, end: 200806
  14. RADIATION THERAPY [Concomitant]
     Active Substance: RADIATION THERAPY
  15. FENTANYL. [Concomitant]
     Active Substance: FENTANYL
  16. OXYCODONE [Concomitant]
     Active Substance: OXYCODONE
  17. LYRICA [Concomitant]
     Active Substance: PREGABALIN
  18. ATIVAN [Concomitant]
     Active Substance: LORAZEPAM
  19. ROXANOL [Concomitant]
     Active Substance: MORPHINE SULFATE
  20. SYMBICORT [Concomitant]
     Active Substance: BUDESONIDE\FORMOTEROL FUMARATE DIHYDRATE
  21. PRILOSEC [Concomitant]
     Active Substance: OMEPRAZOLE MAGNESIUM
  22. DARVOCET-N 100 [Concomitant]
     Active Substance: ACETAMINOPHEN\PROPOXYPHENE NAPSYLATE
     Dosage: 100 MG, UNK
  23. NAVELBINE [Concomitant]
     Active Substance: VINORELBINE TARTRATE
  24. REGLAN [Concomitant]
     Active Substance: METOCLOPRAMIDE HYDROCHLORIDE

REACTIONS (126)
  - Tooth abscess [Unknown]
  - Constipation [Unknown]
  - Sinusitis [Unknown]
  - Thirst [Unknown]
  - Dyspepsia [Unknown]
  - Angioedema [Unknown]
  - Onycholysis [Unknown]
  - Radiculitis [Unknown]
  - Pulmonary calcification [Unknown]
  - Hepatic cyst [Unknown]
  - Eczema [Unknown]
  - Enthesopathy [Unknown]
  - Cataract [Unknown]
  - Carotid bruit [Unknown]
  - Hypovolaemia [Unknown]
  - Pruritus [Unknown]
  - Sinus headache [Unknown]
  - Osteosclerosis [Unknown]
  - Pain [Unknown]
  - Impaired healing [Unknown]
  - Nasal turbinate abnormality [Unknown]
  - Hyperlipidaemia [Unknown]
  - Compression fracture [Unknown]
  - Abdominal pain [Unknown]
  - Haemorrhoids [Unknown]
  - Urinary incontinence [Unknown]
  - Haemangioma [Unknown]
  - Intervertebral disc space narrowing [Unknown]
  - Neuropathy peripheral [Unknown]
  - Colon adenoma [Unknown]
  - Tendonitis [Unknown]
  - Uterine leiomyoma [Unknown]
  - Skin papilloma [Unknown]
  - Polyarthritis [Not Recovered/Not Resolved]
  - Arterial injury [Unknown]
  - Paraesthesia [Unknown]
  - Skin atrophy [Unknown]
  - Hypercalcaemia [Unknown]
  - Deformity [Unknown]
  - General physical health deterioration [Unknown]
  - Radiculopathy [Unknown]
  - Nail hypertrophy [Unknown]
  - Metastases to lymph nodes [Unknown]
  - Bursa disorder [Unknown]
  - Bursitis [Unknown]
  - Confusional state [Unknown]
  - Post laminectomy syndrome [Unknown]
  - Scoliosis [Unknown]
  - Senile osteoporosis [Unknown]
  - Pleural fibrosis [Unknown]
  - Claustrophobia [Unknown]
  - Osteonecrosis of jaw [Unknown]
  - Kyphosis [Unknown]
  - Bronchitis [Unknown]
  - Diverticulum [Unknown]
  - Decreased appetite [Unknown]
  - Spinal pain [Unknown]
  - Osteoarthritis [Unknown]
  - Pneumonitis [Unknown]
  - Hyperkeratosis [Unknown]
  - Joint effusion [Unknown]
  - Arthropathy [Unknown]
  - Agitation [Unknown]
  - Anxiety [Unknown]
  - Loose tooth [Unknown]
  - Intervertebral disc degeneration [Unknown]
  - Atelectasis [Unknown]
  - Arthralgia [Unknown]
  - Nail discolouration [Unknown]
  - Mediastinal mass [Unknown]
  - Metastatic malignant melanoma [Unknown]
  - Hepatitis [Unknown]
  - Musculoskeletal pain [Unknown]
  - Joint range of motion decreased [Unknown]
  - Vitamin D deficiency [Unknown]
  - Pathological fracture [Unknown]
  - Cancer pain [Unknown]
  - Chills [Unknown]
  - Impaired gastric emptying [Unknown]
  - Obesity [Unknown]
  - Oedema peripheral [Unknown]
  - Dental caries [Unknown]
  - Contusion [Unknown]
  - Osteolysis [Unknown]
  - Costochondritis [Unknown]
  - Back pain [Unknown]
  - Nasal septum deviation [Unknown]
  - Dyspnoea exertional [Unknown]
  - Fatigue [Unknown]
  - Lymphadenopathy [Unknown]
  - Metastases to spine [Unknown]
  - Nail disorder [Unknown]
  - Pain in extremity [Unknown]
  - Sleep apnoea syndrome [Unknown]
  - Tooth discolouration [Unknown]
  - Hypoaesthesia [Unknown]
  - Myalgia [Unknown]
  - Bone loss [Unknown]
  - Tooth impacted [Unknown]
  - Fibrous dysplasia of jaw [Unknown]
  - Rib fracture [Unknown]
  - Spondylolisthesis [Unknown]
  - Ulcer [Unknown]
  - Neck pain [Unknown]
  - Renal failure chronic [Unknown]
  - Nail dystrophy [Unknown]
  - Foot deformity [Unknown]
  - Diabetes mellitus [Unknown]
  - Visual impairment [Unknown]
  - Nausea [Unknown]
  - Infection [Unknown]
  - Emotional distress [Unknown]
  - Osteoporosis [Unknown]
  - Gastrooesophageal reflux disease [Unknown]
  - Dizziness [Unknown]
  - Headache [Unknown]
  - Onychomycosis [Unknown]
  - Ingrowing nail [Unknown]
  - Nodal osteoarthritis [Unknown]
  - Seroma [Unknown]
  - Gingival pain [Unknown]
  - Cardiac disorder [Unknown]
  - Tendon disorder [Unknown]
  - Myocardial infarction [Unknown]
  - Muscle spasms [Unknown]
  - Dry mouth [Unknown]
